FAERS Safety Report 7269669-0 (Version None)
Quarter: 2011Q1

REPORT INFORMATION
  Report Type: 
  Country: None (occurrence: None)
  Receive Date: 20110202
  Receipt Date: 20110126
  Transmission Date: 20110831
  Serious: Yes (Death)
  Sender: FDA-Public Use
  Company Number: DE-ELI_LILLY_AND_COMPANY-DE201101006475

PATIENT
  Age: 65 Year
  Sex: Male
  Weight: 91 kg

DRUGS (6)
  1. BIVALIRUDIN [Concomitant]
  2. PRASUGREL HYDROCHLORIDE [Suspect]
     Dosage: 10 MG, MAINTENANCE DOSE
     Dates: start: 20100719
  3. ENOXAPARIN [Concomitant]
  4. HEPARIN [Concomitant]
  5. PRASUGREL HYDROCHLORIDE [Suspect]
     Indication: ACUTE CORONARY SYNDROME
     Dosage: 60 MG, LOADING DOSE
     Dates: start: 20100719, end: 20100719
  6. ASPIRIN [Concomitant]

REACTIONS (3)
  - RIGHT VENTRICULAR FAILURE [None]
  - ACUTE MYOCARDIAL INFARCTION [None]
  - PULMONARY OEDEMA [None]
